FAERS Safety Report 18500936 (Version 1)
Quarter: 2020Q4

REPORT INFORMATION
  Report Type: Spontaneous
  Country: US (occurrence: US)
  Receive Date: 20201112
  Receipt Date: 20201112
  Transmission Date: 20210114
  Serious: Yes (Hospitalization)
  Sender: FDA-Public Use
  Company Number: None

PATIENT
  Age: 72 Year
  Sex: Female

DRUGS (19)
  1. ATORVASTATIN [Concomitant]
     Active Substance: ATORVASTATIN
  2. GABAPENTIN. [Concomitant]
     Active Substance: GABAPENTIN
  3. MUPIROCIN. [Concomitant]
     Active Substance: MUPIROCIN
  4. METOPROL TAR [Concomitant]
  5. LEVOTHYROXIN [Concomitant]
     Active Substance: LEVOTHYROXINE
  6. PRAVASTATIN. [Concomitant]
     Active Substance: PRAVASTATIN
  7. VALSART/HCTZ [Concomitant]
  8. CLONIDINE. [Concomitant]
     Active Substance: CLONIDINE
  9. FLUOXETINE [Concomitant]
     Active Substance: FLUOXETINE HYDROCHLORIDE
  10. CEPHALEXIN. [Concomitant]
     Active Substance: CEPHALEXIN
  11. ESTRADIOL. [Concomitant]
     Active Substance: ESTRADIOL
  12. IRBESARTAN. [Concomitant]
     Active Substance: IRBESARTAN
  13. TRAZODONE [Concomitant]
     Active Substance: TRAZODONE HYDROCHLORIDE
  14. OXYCODONE [Concomitant]
     Active Substance: OXYCODONE
  15. ROPINIROLE. [Concomitant]
     Active Substance: ROPINIROLE
  16. ESBRIET [Suspect]
     Active Substance: PIRFENIDONE
     Indication: IDIOPATHIC PULMONARY FIBROSIS
     Route: 048
     Dates: start: 20190504
  17. CLINDAMYCIN. [Concomitant]
     Active Substance: CLINDAMYCIN
  18. CLOPIDOGREL [Concomitant]
     Active Substance: CLOPIDOGREL BISULFATE
  19. PROPAFENONE. [Concomitant]
     Active Substance: PROPAFENONE

REACTIONS (1)
  - Stent placement [None]

NARRATIVE: CASE EVENT DATE: 20201109
